FAERS Safety Report 13800430 (Version 1)
Quarter: 2017Q3

REPORT INFORMATION
  Report Type: Spontaneous
  Country: FR (occurrence: FR)
  Receive Date: 20170727
  Receipt Date: 20170727
  Transmission Date: 20171127
  Serious: Yes (Other)
  Sender: FDA-Public Use
  Company Number: FR-BAYER-2017-137488

PATIENT
  Age: 52 Year
  Sex: Female

DRUGS (1)
  1. MIRENA [Suspect]
     Active Substance: LEVONORGESTREL
     Dosage: 20 MCG/24HR, CONT
     Route: 015
     Dates: start: 20170425, end: 20170704

REACTIONS (6)
  - Pain in extremity [Not Recovered/Not Resolved]
  - Loss of libido [Recovering/Resolving]
  - Asthenia [Recovering/Resolving]
  - Ovarian cyst [Not Recovered/Not Resolved]
  - Haematoma [Not Recovered/Not Resolved]
  - Depression [Recovering/Resolving]

NARRATIVE: CASE EVENT DATE: 20170514
